FAERS Safety Report 7798907-0 (Version None)
Quarter: 2011Q4

REPORT INFORMATION
  Report Type: 
  Country: None (occurrence: None)
  Receive Date: 20111006
  Receipt Date: 20110927
  Transmission Date: 20120403
  Serious: Yes (Other)
  Sender: FDA-Public Use
  Company Number: US-JNJFOC-20111001442

PATIENT
  Sex: Male
  Weight: 73.94 kg

DRUGS (6)
  1. XANAX [Concomitant]
     Indication: INTERVERTEBRAL DISC DEGENERATION
     Route: 048
     Dates: start: 20010101
  2. DURAGESIC-100 [Suspect]
     Indication: INTERVERTEBRAL DISC DEGENERATION
     Route: 062
     Dates: start: 20100801
  3. PANCRELIPASE [Suspect]
     Indication: PANCREATITIS
     Route: 048
     Dates: start: 20100801
  4. PERCOCET [Concomitant]
     Indication: BREAKTHROUGH PAIN
     Route: 048
     Dates: start: 20010101
  5. DURAGESIC-100 [Suspect]
     Indication: PANCREATITIS
     Route: 062
     Dates: start: 20100801
  6. XANAX [Concomitant]
     Indication: ANXIETY
     Route: 048
     Dates: start: 20010101

REACTIONS (5)
  - WEIGHT DECREASED [None]
  - RECTAL LESION [None]
  - FEELING HOT [None]
  - RECTAL HAEMORRHAGE [None]
  - PRODUCT QUALITY ISSUE [None]
